FAERS Safety Report 6942383-4 (Version None)
Quarter: 2010Q3

REPORT INFORMATION
  Report Type: 
  Country: None (occurrence: None)
  Receive Date: 20100826
  Receipt Date: 20100812
  Transmission Date: 20110219
  Serious: Yes (Other)
  Sender: FDA-Public Use
  Company Number: PHHY2010US50770

PATIENT
  Sex: Female

DRUGS (4)
  1. FEMARA [Suspect]
     Dosage: 2.5 MG
     Route: 048
     Dates: start: 20100316
  2. MIRTAZAPINE [Concomitant]
  3. GILEX [Concomitant]
     Dosage: 60 MG, QD
     Route: 048
  4. XANAX [Concomitant]
     Dosage: 1 MG, PRN
     Route: 048

REACTIONS (4)
  - ARTERIAL STENOSIS [None]
  - BLOOD PRESSURE DIASTOLIC INCREASED [None]
  - CORONARY ARTERY DISEASE [None]
  - EJECTION FRACTION ABNORMAL [None]
